FAERS Safety Report 18744386 (Version 2)
Quarter: 2021Q1

REPORT INFORMATION
  Report Type: Spontaneous
  Country: US (occurrence: US)
  Receive Date: 20210114
  Receipt Date: 20210127
  Transmission Date: 20210419
  Serious: Yes (Hospitalization, Other)
  Sender: FDA-Public Use
  Company Number: US-ASTRAZENECA-2021A002216

PATIENT
  Age: 20240 Day
  Sex: Male

DRUGS (23)
  1. PREDNISONE. [Concomitant]
     Active Substance: PREDNISONE
  2. FARXIGA [Suspect]
     Active Substance: DAPAGLIFLOZIN PROPANEDIOL
     Indication: BLOOD PRESSURE DECREASED
     Route: 048
     Dates: start: 20180221, end: 201812
  3. LISINOPRIL. [Concomitant]
     Active Substance: LISINOPRIL
  4. SIMVASTATIN. [Concomitant]
     Active Substance: SIMVASTATIN
  5. FLUTICASONE. [Concomitant]
     Active Substance: FLUTICASONE
  6. ATORVASTATIN CALCIUM. [Concomitant]
     Active Substance: ATORVASTATIN CALCIUM
  7. TAMSULOSIN [Concomitant]
     Active Substance: TAMSULOSIN
  8. ASPIRIN. [Concomitant]
     Active Substance: ASPIRIN
  9. GENTAMICIN. [Concomitant]
     Active Substance: GENTAMICIN
  10. JARDIANCE [Concomitant]
     Active Substance: EMPAGLIFLOZIN
  11. METFORMIN [Concomitant]
     Active Substance: METFORMIN HYDROCHLORIDE
  12. HYDROCODONE?ACETAMINOPHEN [Concomitant]
     Active Substance: ACETAMINOPHEN\HYDROCODONE
  13. BUTALBITAL [Concomitant]
     Active Substance: BUTALBITAL
  14. FARXIGA [Suspect]
     Active Substance: DAPAGLIFLOZIN PROPANEDIOL
     Indication: TYPE 2 DIABETES MELLITUS
     Route: 048
     Dates: start: 20180221, end: 201812
  15. AMLODIPINE BESYLATE. [Concomitant]
     Active Substance: AMLODIPINE BESYLATE
  16. FARXIGA [Suspect]
     Active Substance: DAPAGLIFLOZIN PROPANEDIOL
     Indication: WEIGHT DECREASED
     Route: 048
     Dates: start: 20180221, end: 201812
  17. OXYCODONE [Concomitant]
     Active Substance: OXYCODONE
  18. PIOGLITAZONE. [Concomitant]
     Active Substance: PIOGLITAZONE
  19. CYCLOBENZAPRINE. [Concomitant]
     Active Substance: CYCLOBENZAPRINE
  20. GABAPENTIN. [Concomitant]
     Active Substance: GABAPENTIN
  21. HYDROCHLOROTHIAZIDE. [Concomitant]
     Active Substance: HYDROCHLOROTHIAZIDE
  22. AMOXICILLIN. [Concomitant]
     Active Substance: AMOXICILLIN
  23. VITAMIN D [Concomitant]
     Active Substance: VITAMIN D NOS

REACTIONS (7)
  - Acute kidney injury [Unknown]
  - Fournier^s gangrene [Unknown]
  - Scrotal abscess [Unknown]
  - Wound dehiscence [Unknown]
  - Renal tubular necrosis [Unknown]
  - Sepsis [Unknown]
  - Hypotension [Unknown]

NARRATIVE: CASE EVENT DATE: 20181211
